FAERS Safety Report 12207076 (Version 1)
Quarter: 2016Q1

REPORT INFORMATION
  Report Type: Spontaneous
  Country: US (occurrence: US)
  Receive Date: 20160324
  Receipt Date: 20160324
  Transmission Date: 20160526
  Serious: No
  Sender: FDA-Public Use
  Company Number: US-JNJFOC-20160306946

PATIENT
  Sex: Male
  Weight: 82.56 kg

DRUGS (1)
  1. GENERIC FENTANYL PATCH [Suspect]
     Active Substance: FENTANYL
     Indication: PAIN
     Route: 062

REACTIONS (1)
  - Adverse event [Recovered/Resolved]
